FAERS Safety Report 23168316 (Version 1)
Quarter: 2023Q4

REPORT INFORMATION
  Report Type: Spontaneous
  Country: US (occurrence: US)
  Receive Date: 20231110
  Receipt Date: 20231110
  Transmission Date: 20240110
  Serious: No
  Sender: FDA-Public Use
  Company Number: US-SA-SAC20231107000208

PATIENT
  Sex: Female
  Weight: 95.2 kg

DRUGS (12)
  1. DUPIXENT [Suspect]
     Active Substance: DUPILUMAB
     Indication: Neurodermatitis
     Dosage: 300 MG, QOW
     Route: 058
  2. BIOTIN [Concomitant]
     Active Substance: BIOTIN
  3. COLLAGEN [Concomitant]
     Active Substance: COLLAGEN
  4. VITAMIN B12 [Concomitant]
     Active Substance: CYANOCOBALAMIN
  5. LORAZEPAM [Concomitant]
     Active Substance: LORAZEPAM
  6. VENTOLIN HFA [Concomitant]
     Active Substance: ALBUTEROL SULFATE
  7. TRIAMCINOLONE ACETONIDE [Concomitant]
     Active Substance: TRIAMCINOLONE ACETONIDE
  8. BRIVIACT [Concomitant]
     Active Substance: BRIVARACETAM
  9. ADVAIR HFA [Concomitant]
     Active Substance: FLUTICASONE PROPIONATE\SALMETEROL XINAFOATE
  10. LEVETIRACETAM [Concomitant]
     Active Substance: LEVETIRACETAM
  11. CIPROFLOXACIN HYDROCHLORIDE [Concomitant]
     Active Substance: CIPROFLOXACIN HYDROCHLORIDE
  12. NITROFURANTOIN [Concomitant]
     Active Substance: NITROFURANTOIN

REACTIONS (1)
  - Carpal tunnel syndrome [Unknown]
